FAERS Safety Report 18271476 (Version 1)
Quarter: 2020Q3

REPORT INFORMATION
  Report Type: Spontaneous
  Country: US (occurrence: US)
  Receive Date: 20200916
  Receipt Date: 20200916
  Transmission Date: 20201103
  Serious: Yes (Other)
  Sender: FDA-Public Use
  Company Number: US-ROCHE-2676883

PATIENT
  Age: 41 Year
  Sex: Male
  Weight: 77.18 kg

DRUGS (2)
  1. OCREVUS [Suspect]
     Active Substance: OCRELIZUMAB
     Indication: RELAPSING-REMITTING MULTIPLE SCLEROSIS
     Dosage: ONGOING: YES
     Route: 042
     Dates: start: 201901
  2. VITAMIN C [Concomitant]
     Active Substance: ASCORBIC ACID
     Route: 048

REACTIONS (3)
  - Feeling abnormal [Unknown]
  - Pyrexia [Recovered/Resolved]
  - Varicella zoster virus infection [Recovering/Resolving]

NARRATIVE: CASE EVENT DATE: 20200827
